FAERS Safety Report 9221533 (Version 2)
Quarter: 2013Q2

REPORT INFORMATION
  Report Type: Spontaneous
  Country: US (occurrence: US)
  Receive Date: 20130410
  Receipt Date: 20130515
  Transmission Date: 20140414
  Serious: Yes (Other)
  Sender: FDA-Public Use
  Company Number: US-SHIRE-ALL1-2013-02136

PATIENT
  Sex: Male
  Weight: 19.5 kg

DRUGS (3)
  1. INTUNIV [Suspect]
     Indication: ATTENTION DEFICIT/HYPERACTIVITY DISORDER
     Dosage: 2 MG, 1X/DAY:QD
     Route: 048
     Dates: start: 20130313, end: 20130401
  2. INTUNIV [Suspect]
     Dosage: 1 MG, 1X/DAY:QD
     Route: 048
     Dates: start: 20121126, end: 20130312
  3. INTUNIV [Suspect]
     Dosage: 1 MG, 1X/DAY:QD
     Route: 048
     Dates: start: 20130402

REACTIONS (6)
  - Suicidal ideation [Unknown]
  - Depression [Unknown]
  - Negative thoughts [Unknown]
  - Crying [Unknown]
  - Drug dose omission [Unknown]
  - Off label use [Unknown]
